FAERS Safety Report 5431629-X (Version None)
Quarter: 2007Q3

REPORT INFORMATION
  Report Type: 
  Country: None (occurrence: None)
  Receive Date: 20070830
  Receipt Date: 20070820
  Transmission Date: 20080115
  Serious: Yes (Hospitalization)
  Sender: FDA-Public Use
  Company Number: FR-BRISTOL-MYERS SQUIBB COMPANY-13891494

PATIENT
  Age: 3 Year
  Sex: Male

DRUGS (4)
  1. HOLOXAN [Suspect]
     Indication: RHABDOMYOSARCOMA
     Dosage: THERAPY DATES OF CYCLE 1: 25JUN'07-26JUN'07,CYCLE 2: 30MAY'07-30MAY'07,CYCLE 3: 04MAY'07-04MAY'07.
     Route: 042
     Dates: start: 20070504, end: 20070626
  2. ONCOVIN [Suspect]
     Indication: RHABDOMYOSARCOMA
     Dosage: THERAPY DATES OF CYCLE 1: 25JUN'07-25JUN'07,CYCLE 2: 30MAY'07-30MAY'07.
     Route: 042
     Dates: start: 20070530, end: 20070625
  3. UROMITEXAN [Concomitant]
     Route: 042
     Dates: start: 20070625
  4. ACTINOMYCIN-D [Concomitant]

REACTIONS (6)
  - CONVULSION [None]
  - CYSTITIS HAEMORRHAGIC [None]
  - HYPERHIDROSIS [None]
  - HYPOTENSION [None]
  - HYPOTONIA [None]
  - MALAISE [None]
